FAERS Safety Report 10029557 (Version 1)
Quarter: 2014Q1

REPORT INFORMATION
  Report Type: Spontaneous
  Country: US (occurrence: None)
  Receive Date: 20140320
  Receipt Date: 20140320
  Transmission Date: 20141002
  Serious: Yes (Other)
  Sender: FDA-Public Use
  Company Number: None

PATIENT
  Age: 43 Year
  Sex: Female
  Weight: 81.65 kg

DRUGS (1)
  1. LEVAQUIN [Suspect]
     Indication: INFLUENZA
     Dosage: 1 PILL TWICE DAILY TAKEN BY MOUTH
     Dates: start: 20140109, end: 20140111

REACTIONS (6)
  - Influenza [None]
  - Headache [None]
  - Vertigo [None]
  - Loss of consciousness [None]
  - Migraine [None]
  - Condition aggravated [None]
